FAERS Safety Report 8095784-8 (Version None)
Quarter: 2011Q4

REPORT INFORMATION
  Report Type: 
  Country: None (occurrence: None)
  Receive Date: 20111222
  Receipt Date: 20111013
  Transmission Date: 20120403
  Serious: Yes (Hospitalization)
  Sender: FDA-Public Use
  Company Number: UTC-011236

PATIENT
  Sex: Female
  Weight: 72.27 kg

DRUGS (3)
  1. TYVASO [Suspect]
     Indication: COR PULMONALE CHRONIC
     Dosage: 18 - 54 MICROGRAMS (4 IN 1 D), INHALATION
     Route: 055
     Dates: start: 20100402
  2. TRACLEER (BOSENTAN) (UNKNOWN) [Concomitant]
  3. REVATIO (SILDENAFIL CITRATE) (UNKNOWN) [Concomitant]

REACTIONS (2)
  - PNEUMONIA [None]
  - DYSPNOEA [None]
